FAERS Safety Report 9672234 (Version 2)
Quarter: 2013Q4

REPORT INFORMATION
  Report Type: Report from Study
  Country: CA (occurrence: CA)
  Receive Date: 20131106
  Receipt Date: 20131106
  Transmission Date: 20140711
  Serious: Yes (Other)
  Sender: FDA-Public Use
  Company Number: CA-UCBSA-101694

PATIENT
  Age: 63 Year
  Sex: Female
  Weight: 81.81 kg

DRUGS (5)
  1. CIMZIA [Suspect]
     Indication: RHEUMATOID ARTHRITIS
     Dosage: LOT NUMBER FOR MEDICATION DISPENSED BETWEEN JUN-2013 AND AUG/2013 WAS 98810 AND MAY-2013 WAS 87766
     Route: 058
     Dates: start: 20111106
  2. CIMZIA [Suspect]
     Indication: RHEUMATOID ARTHRITIS
     Route: 058
     Dates: start: 20110925, end: 20111023
  3. METHOTREXATE [Concomitant]
     Indication: RHEUMATOID ARTHRITIS
     Route: 058
     Dates: start: 200505
  4. FOLIC ACID [Concomitant]
     Indication: SUPPLEMENTATION THERAPY
     Route: 048
     Dates: start: 200505
  5. ADVIL [Concomitant]
     Indication: ANALGESIC THERAPY
     Dosage: I-II TABLETS ONCE IN 4 TO 6 HOURS AS REQUIRED
     Route: 048
     Dates: start: 2005

REACTIONS (3)
  - Aneurysm [Not Recovered/Not Resolved]
  - Dizziness [Not Recovered/Not Resolved]
  - Arthralgia [Not Recovered/Not Resolved]
